FAERS Safety Report 4283902-9 (Version None)
Quarter: 2004Q1

REPORT INFORMATION
  Report Type: 
  Country: None (occurrence: None)
  Receive Date: 20040130
  Receipt Date: 20040123
  Transmission Date: 20041129
  Serious: Yes (Hospitalization)
  Sender: FDA-Public Use
  Company Number: WAES 0312DEU00164

PATIENT
  Age: 48 Year
  Sex: Male

DRUGS (2)
  1. ZETIA [Suspect]
     Dosage: 10 MG/DAILY, PO
     Route: 048
     Dates: start: 20030321
  2. ZOCOR [Concomitant]

REACTIONS (8)
  - BLOOD PRESSURE INCREASED [None]
  - GLOMERULONEPHRITIS [None]
  - HAEMATURIA [None]
  - HEPATITIS B [None]
  - NEPHRITIS INTERSTITIAL [None]
  - NEPHROTIC SYNDROME [None]
  - RENAL CYST [None]
  - RHEUMATOID FACTOR INCREASED [None]
